FAERS Safety Report 20977222 (Version 2)
Quarter: 2023Q1

REPORT INFORMATION
  Report Type: Spontaneous
  Country: SI (occurrence: SI)
  Receive Date: 20220617
  Receipt Date: 20230125
  Transmission Date: 20230418
  Serious: Yes (Other)
  Sender: FDA-Public Use
  Company Number: SI-BRISTOL-MYERS SQUIBB COMPANY-2022-057658

PATIENT
  Age: 48 Year
  Sex: Male

DRUGS (7)
  1. ELIQUIS [Suspect]
     Active Substance: APIXABAN
     Indication: Cerebral venous thrombosis
     Dosage: FIRST REGIMEN
  2. ELIQUIS [Suspect]
     Active Substance: APIXABAN
     Dosage: 7 DAYS) FOR ANTICOAGULANT THERAPY.
  3. DALTEPARIN SODIUM [Suspect]
     Active Substance: DALTEPARIN SODIUM
     Indication: Product used for unknown indication
  4. DALTEPARIN SODIUM [Suspect]
     Active Substance: DALTEPARIN SODIUM
     Indication: Product used for unknown indication
     Dosage: IN THERAPEUTIC DOSE
  5. DALTEPARIN SODIUM [Suspect]
     Active Substance: DALTEPARIN SODIUM
  6. LACOSAMIDE [Suspect]
     Active Substance: LACOSAMIDE
     Indication: Epilepsy
     Dosage: 100 MG, 2X/DAY
  7. LACOSAMIDE [Suspect]
     Active Substance: LACOSAMIDE

REACTIONS (3)
  - Hypercoagulation [Unknown]
  - Fatigue [Unknown]
  - Disturbance in attention [Unknown]
